FAERS Safety Report 15009617 (Version 1)
Quarter: 2018Q2

REPORT INFORMATION
  Report Type: Spontaneous
  Country: US (occurrence: US)
  Receive Date: 20180614
  Receipt Date: 20180614
  Transmission Date: 20180711
  Serious: Yes (Life-Threatening, Hospitalization, Other)
  Sender: FDA-Public Use
  Company Number: US-LUPIN PHARMACEUTICALS INC.-2018-04358

PATIENT
  Age: 36 Year
  Sex: Male

DRUGS (2)
  1. LOPERAMIDE [Suspect]
     Active Substance: LOPERAMIDE
     Indication: WITHDRAWAL SYNDROME
     Dosage: UP TO 200, 2-MG TABLETS DAILY
     Route: 065
  2. OXYCODONE [Suspect]
     Active Substance: OXYCODONE
     Indication: PRODUCT USED FOR UNKNOWN INDICATION
     Dosage: UNK
     Route: 065

REACTIONS (7)
  - Syncope [Unknown]
  - Ventricular tachycardia [Recovered/Resolved]
  - Bradycardia [Recovered/Resolved]
  - Toxicity to various agents [Unknown]
  - Drug abuse [Unknown]
  - Withdrawal syndrome [Unknown]
  - Torsade de pointes [Recovered/Resolved]
